FAERS Safety Report 9383583 (Version 2)
Quarter: 2013Q3

REPORT INFORMATION
  Report Type: Spontaneous
  Country: US (occurrence: US)
  Receive Date: 20130704
  Receipt Date: 20130716
  Transmission Date: 20140515
  Serious: Yes (Other)
  Sender: FDA-Public Use
  Company Number: US-PFIZER INC-2013197679

PATIENT
  Age: 64 Year
  Sex: Female
  Weight: 72.56 kg

DRUGS (13)
  1. LYRICA [Suspect]
     Indication: PAIN
     Dosage: 150 MG, 4X/DAY
     Route: 048
     Dates: end: 201306
  2. LYRICA [Suspect]
     Indication: NERVE INJURY
     Dosage: 150 MG, 4X/DAY
     Route: 048
  3. LIPITOR [Concomitant]
     Dosage: UNK
  4. OMEPRAZOLE [Concomitant]
     Dosage: UNK
  5. NEXIUM [Concomitant]
     Dosage: UNK
  6. ADVIL [Concomitant]
     Dosage: UNK
  7. ALBUTEROL [Concomitant]
     Indication: ASTHMA
     Dosage: UNK
  8. SPIRIVA [Concomitant]
     Indication: ASTHMA
     Dosage: UNK
  9. FOSAMAX [Concomitant]
     Dosage: UNK
  10. CALCIUM, VITAMIN D [Concomitant]
     Dosage: UNK
  11. ASPIRIN [Concomitant]
     Dosage: 81 MG, 1X/DAY
  12. MOBIC [Concomitant]
     Dosage: 7.5 MG, AS NEEDED
  13. BACLOFEN [Concomitant]
     Dosage: 20 MG, 4X/DAY

REACTIONS (9)
  - Nerve injury [Unknown]
  - Burning sensation [Unknown]
  - Pain [Unknown]
  - Hypoaesthesia [Unknown]
  - Middle insomnia [Unknown]
  - Fear [Unknown]
  - Pain in extremity [Unknown]
  - Abnormal behaviour [Unknown]
  - Feeling abnormal [Unknown]
